FAERS Safety Report 15361721 (Version 1)
Quarter: 2018Q3

REPORT INFORMATION
  Report Type: Spontaneous
  Country: US (occurrence: US)
  Receive Date: 20180907
  Receipt Date: 20180907
  Transmission Date: 20181010
  Serious: Yes (Other)
  Sender: FDA-Public Use
  Company Number: US-PFIZER INC-2018352157

PATIENT

DRUGS (1)
  1. LABETALOL HYDROCHLORIDE. [Suspect]
     Active Substance: LABETALOL HYDROCHLORIDE
     Dosage: UNK

REACTIONS (5)
  - Overdose [Unknown]
  - Myocardial infarction [Unknown]
  - Product use in unapproved indication [Unknown]
  - Renal failure [Unknown]
  - Brain injury [Unknown]
